FAERS Safety Report 6106236-6 (Version None)
Quarter: 2009Q1

REPORT INFORMATION
  Report Type: 
  Country: None (occurrence: None)
  Receive Date: 20090306
  Receipt Date: 20090226
  Transmission Date: 20090719
  Serious: Yes (Hospitalization)
  Sender: FDA-Public Use
  Company Number: DE-TEVA-186479ISR

PATIENT
  Age: 76 Year
  Sex: Male
  Weight: 73 kg

DRUGS (8)
  1. BISOPROLOL [Suspect]
     Indication: HYPERTENSION
     Route: 048
  2. SPIRONOLACTONE [Suspect]
     Indication: OEDEMA
     Route: 048
     Dates: end: 20081117
  3. ASPIRIN [Concomitant]
     Indication: PROPHYLAXIS
     Route: 048
  4. CANDESARTAN CILEXETIL [Concomitant]
     Indication: HYPERTENSION
     Route: 048
  5. DIGITOXIN [Concomitant]
     Indication: CARDIAC FAILURE
     Route: 048
     Dates: end: 20081117
  6. INEGY (EZETIMIB + SIMVASTATIN) [Concomitant]
     Indication: HYPERCHOLESTEROLAEMIA
     Route: 048
  7. OMEPRAZOLE [Concomitant]
     Indication: PROPHYLAXIS
     Route: 048
  8. TORSEMIDE [Concomitant]
     Indication: OEDEMA
     Route: 048
     Dates: end: 20081117

REACTIONS (1)
  - HYPERKALAEMIA [None]
